FAERS Safety Report 5033154-7 (Version None)
Quarter: 2006Q2

REPORT INFORMATION
  Report Type: 
  Country: None (occurrence: None)
  Receive Date: 20060622
  Receipt Date: 20060612
  Transmission Date: 20061013
  Serious: Yes (Other)
  Sender: FDA-Public Use
  Company Number: SN-BRISTOL-MYERS SQUIBB COMPANY-13413570

PATIENT
  Age: 54 Year
  Sex: Male

DRUGS (5)
  1. HYDREA [Suspect]
     Indication: THROMBOCYTOPENIA
     Route: 048
     Dates: start: 20041221, end: 20060508
  2. TENORMIN [Concomitant]
     Indication: HYPERTENSION
     Dates: start: 20030301
  3. AMLOR [Concomitant]
     Indication: HYPERTENSION
     Dates: start: 20041101, end: 20050124
  4. RODOGYL [Concomitant]
     Indication: TOOTH EXTRACTION
     Dates: start: 20051029, end: 20051107
  5. OFLOCET [Concomitant]
     Indication: SINOBRONCHITIS
     Dates: start: 20060104, end: 20060113

REACTIONS (5)
  - CYTOLYTIC HEPATITIS [None]
  - GINGIVAL BLEEDING [None]
  - HEPATITIS CHOLESTATIC [None]
  - HEPATOCELLULAR DAMAGE [None]
  - HEPATOMEGALY [None]
